FAERS Safety Report 5333044-6 (Version None)
Quarter: 2007Q1

REPORT INFORMATION
  Report Type: 
  Country: None (occurrence: None)
  Receive Date: 20070306
  Receipt Date: 20060705
  Transmission Date: 20070707
  Serious: Yes (Other)
  Sender: FDA-Public Use
  Company Number: A03200604307

PATIENT
  Age: 83 Year
  Sex: Male
  Weight: 80.72 kg

DRUGS (23)
  1. PLAVIX [Suspect]
     Indication: TRANSIENT ISCHAEMIC ATTACK
     Dosage: 75 MG QD - ORAL
     Route: 048
     Dates: start: 19970101
  2. DIPYRIDAMOLE [Concomitant]
  3. CETIRIZINE HCL [Concomitant]
  4. MONTELUKAST SODIUM [Concomitant]
  5. ALBUTEROL [Concomitant]
  6. SALMETEROL + FLUTICASONE [Concomitant]
  7. ACETYLSALICYLIC ACID SRT [Concomitant]
  8. OLMESARTAN MEDOXOMIL [Concomitant]
  9. SIMVASTATIN [Concomitant]
  10. INDAPAMIDE [Concomitant]
  11. OMEPRAZOLE [Concomitant]
  12. BRIMONIDINE TARTRATE [Concomitant]
  13. METFORMIN HYDROCHLORIDE [Concomitant]
  14. CALCIUM CHLORIDE [Concomitant]
  15. THIAMINE HCL [Concomitant]
  16. VITAMIN B-12 [Concomitant]
  17. FOLGARD [Concomitant]
  18. ASCORBIC ACID [Concomitant]
  19. VITAMIN E [Concomitant]
  20. SELENIUM SULFIDE [Concomitant]
  21. FISH OIL [Concomitant]
  22. GARLIC [Concomitant]
  23. LECITHIN [Concomitant]

REACTIONS (2)
  - DIPLOPIA [None]
  - TRANSIENT ISCHAEMIC ATTACK [None]
